FAERS Safety Report 19395890 (Version 9)
Quarter: 2021Q4

REPORT INFORMATION
  Report Type: Spontaneous
  Country: US (occurrence: US)
  Receive Date: 20210609
  Receipt Date: 20211021
  Transmission Date: 20220304
  Serious: Yes (Hospitalization, Other)
  Sender: FDA-Public Use
  Company Number: US-BIOGEN-2021BI01019585

PATIENT
  Age: 46 Year
  Sex: Female

DRUGS (4)
  1. TYSABRI [Suspect]
     Active Substance: NATALIZUMAB
     Indication: Multiple sclerosis
     Route: 065
     Dates: start: 20110620, end: 20130709
  2. TYSABRI [Suspect]
     Active Substance: NATALIZUMAB
     Route: 065
     Dates: start: 20190122, end: 20201130
  3. TYSABRI [Suspect]
     Active Substance: NATALIZUMAB
     Route: 065
  4. TYSABRI [Suspect]
     Active Substance: NATALIZUMAB
     Route: 065
     Dates: end: 202012

REACTIONS (10)
  - Multiple sclerosis [Not Recovered/Not Resolved]
  - Blindness [Unknown]
  - Feeling abnormal [Not Recovered/Not Resolved]
  - General physical health deterioration [Unknown]
  - Gait disturbance [Unknown]
  - Visual acuity reduced [Unknown]
  - Speech disorder [Unknown]
  - Dysphonia [Unknown]
  - Head titubation [Unknown]
  - Tremor [Unknown]

NARRATIVE: CASE EVENT DATE: 20201201
